FAERS Safety Report 7533108-2 (Version None)
Quarter: 2011Q2

REPORT INFORMATION
  Report Type: 
  Country: None (occurrence: None)
  Receive Date: 20110608
  Receipt Date: 20110530
  Transmission Date: 20111010
  Serious: Yes (Other)
  Sender: FDA-Public Use
  Company Number: DE-B.I. PHARMACEUTICALS,INC./RIDGEFIELD-2011-DE-03358GD

PATIENT
  Age: 47 Year

DRUGS (3)
  1. L-DOPA [Suspect]
     Indication: PARKINSON'S DISEASE
     Dosage: 800 MG
  2. ROTIGOTINE [Suspect]
     Indication: PARKINSON'S DISEASE
     Dosage: 4 MG
  3. PRAMIPEXOLE DIHYDROCHLORIDE [Suspect]
     Indication: PARKINSON'S DISEASE
     Dosage: 3.5 MG

REACTIONS (1)
  - DOPAMINE DYSREGULATION SYNDROME [None]
